FAERS Safety Report 8385147-X (Version None)
Quarter: 2012Q2

REPORT INFORMATION
  Report Type: 
  Country: None (occurrence: None)
  Receive Date: 20120524
  Receipt Date: 20120518
  Transmission Date: 20120825
  Serious: Yes (Hospitalization)
  Sender: FDA-Public Use
  Company Number: DE-TEVA-339011GER

PATIENT
  Sex: Female
  Weight: 79 kg

DRUGS (11)
  1. GRANISETRON [Concomitant]
     Dates: start: 20120502
  2. DEXAMETHASONE SODIUM PHOSPHATE [Concomitant]
     Dates: start: 20120502
  3. EMEND [Concomitant]
  4. ONDANSETRON [Concomitant]
     Dates: start: 20120509
  5. CARBOPLATIN [Suspect]
     Indication: BREAST CANCER
     Route: 042
     Dates: start: 20120502
  6. BEVACIZUMAB [Suspect]
     Indication: BREAST CANCER
     Route: 042
     Dates: start: 20120502
  7. RANITIDINE HCL [Concomitant]
     Dates: start: 20120502
  8. EMEND [Concomitant]
     Dates: start: 20120509
  9. DOXORUBICIN HCL [Suspect]
     Indication: BREAST CANCER
     Route: 042
     Dates: start: 20120502
  10. PACLITAXEL [Suspect]
     Indication: BREAST CANCER
     Route: 042
     Dates: start: 20120502
  11. CLEMASTIN [Concomitant]
     Dates: start: 20120502

REACTIONS (1)
  - BRADYCARDIA [None]
